FAERS Safety Report 8257183-5 (Version None)
Quarter: 2012Q2

REPORT INFORMATION
  Report Type: 
  Country: None (occurrence: None)
  Receive Date: 20120403
  Receipt Date: 20120329
  Transmission Date: 20120825
  Serious: Yes (Life-Threatening, Hospitalization)
  Sender: FDA-Public Use
  Company Number: PHEH2012US006998

PATIENT
  Sex: Female
  Weight: 60.33 kg

DRUGS (4)
  1. ZOCOR [Concomitant]
  2. GILENYA [Suspect]
     Indication: RELAPSING-REMITTING MULTIPLE SCLEROSIS
     Dosage: 0.5 MG, QD
     Route: 048
  3. COREG [Concomitant]
  4. LISINOPRIL [Concomitant]

REACTIONS (14)
  - ELECTROCARDIOGRAM ABNORMAL [None]
  - BLOOD CREATINE PHOSPHOKINASE INCREASED [None]
  - HYPOKINESIA [None]
  - TROPONIN INCREASED [None]
  - ACUTE MYOCARDIAL INFARCTION [None]
  - ARTERIAL STENOSIS [None]
  - DYSPEPSIA [None]
  - DEPRESSION [None]
  - WHITE BLOOD CELL COUNT DECREASED [None]
  - CHEST PAIN [None]
  - VITAMIN D DEFICIENCY [None]
  - HAEMOGLOBIN INCREASED [None]
  - HEADACHE [None]
  - OSTEOARTHRITIS [None]
